FAERS Safety Report 4854249-4 (Version None)
Quarter: 2005Q4

REPORT INFORMATION
  Report Type: 
  Country: None (occurrence: None)
  Receive Date: 20051213
  Receipt Date: 20051213
  Transmission Date: 20060501
  Serious: Yes (Death, Hospitalization)
  Sender: FDA-Public Use
  Company Number: None

PATIENT
  Sex: Female
  Weight: 76 kg

DRUGS (14)
  1. GEMCITABINE [Suspect]
     Indication: HEPATIC NEOPLASM MALIGNANT
     Dosage: 421.875MG/M2 IV Q2WEEKS
     Route: 042
     Dates: start: 20041027, end: 20050928
  2. OXALIPLATIN [Suspect]
     Indication: HEPATIC NEOPLASM MALIGNANT
     Dosage: 35.8594MG/M2 IV Q2WEEKS
     Route: 042
     Dates: start: 20041027, end: 20050928
  3. BEVACIZUMAB [Suspect]
     Indication: HEPATIC NEOPLASM MALIGNANT
     Dosage: 10MG/KG IV Q2WEEKS
     Route: 042
     Dates: start: 20041012, end: 20050927
  4. ATIVAN [Concomitant]
  5. ZOFRAN [Concomitant]
  6. CALCIUM GLUCONATE [Concomitant]
  7. CLARITIN [Concomitant]
  8. DOXYCYCLINE [Concomitant]
  9. MULTIVITAMIN [Concomitant]
  10. SYNTHROID [Concomitant]
  11. CAPTOPRIL [Concomitant]
  12. LASIX [Concomitant]
  13. NORVASC [Concomitant]
  14. XIGRIS [Concomitant]

REACTIONS (7)
  - DISORIENTATION [None]
  - DYSARTHRIA [None]
  - FATIGUE [None]
  - HYPOTENSION [None]
  - INFECTION [None]
  - PNEUMONIA [None]
  - SEPSIS [None]
